FAERS Safety Report 18091690 (Version 1)
Quarter: 2020Q3

REPORT INFORMATION
  Report Type: Spontaneous
  Country: DK (occurrence: DK)
  Receive Date: 20200730
  Receipt Date: 20200730
  Transmission Date: 20201103
  Serious: Yes (Hospitalization)
  Sender: FDA-Public Use
  Company Number: NVSC2020DK210391

PATIENT
  Age: 53 Year
  Sex: Male

DRUGS (3)
  1. METHOTREXATE. [Suspect]
     Active Substance: METHOTREXATE
     Indication: SPONDYLITIS
     Dosage: 15 MG, QW (STRENGTH : UNKNOWN)
     Route: 048
     Dates: start: 20120917
  2. CIMZIA [Concomitant]
     Active Substance: CERTOLIZUMAB PEGOL
     Indication: SPONDYLITIS
     Dosage: UNK (STRENGTH: UNKNOWN)
     Route: 065
     Dates: start: 201606, end: 20180123
  3. BENEPALI [Concomitant]
     Active Substance: ETANERCEPT
     Indication: SPONDYLITIS
     Dosage: UNK (STRENGTH: UNKNOWN)
     Route: 065
     Dates: start: 20180123, end: 201806

REACTIONS (5)
  - Motor dysfunction [Not Recovered/Not Resolved]
  - Visual impairment [Not Recovered/Not Resolved]
  - Dizziness [Not Recovered/Not Resolved]
  - Hepatic enzyme increased [Unknown]
  - Speech disorder [Not Recovered/Not Resolved]

NARRATIVE: CASE EVENT DATE: 20180117
